FAERS Safety Report 7065361-6 (Version None)
Quarter: 2010Q4

REPORT INFORMATION
  Report Type: 
  Country: None (occurrence: None)
  Receive Date: 20101027
  Receipt Date: 20101013
  Transmission Date: 20110411
  Serious: Yes (Hospitalization)
  Sender: FDA-Public Use
  Company Number: DE-SANOFI-AVENTIS-2010SA063326

PATIENT
  Age: 66 Year
  Sex: Male
  Weight: 80 kg

DRUGS (28)
  1. CLOPIDOGREL BISULFATE [Suspect]
     Indication: CORONARY ARTERY DISEASE
     Route: 048
     Dates: start: 20090907
  2. CLOPIDOGREL BISULFATE [Suspect]
     Indication: STENT PLACEMENT
     Route: 048
     Dates: start: 20090907
  3. CLOPIDOGREL BISULFATE [Suspect]
     Route: 048
     Dates: start: 20090906, end: 20090906
  4. CLOPIDOGREL BISULFATE [Suspect]
     Route: 048
     Dates: start: 20090906, end: 20090906
  5. ENOXAPARIN SODIUM [Suspect]
     Indication: ATRIAL FIBRILLATION
     Route: 065
     Dates: start: 20090908, end: 20090910
  6. ENOXAPARIN SODIUM [Suspect]
     Indication: THROMBOSIS PROPHYLAXIS
     Route: 065
     Dates: start: 20090908, end: 20090910
  7. ENOXAPARIN SODIUM [Suspect]
     Route: 058
     Dates: start: 20090910, end: 20090915
  8. ENOXAPARIN SODIUM [Suspect]
     Route: 058
     Dates: start: 20090910, end: 20090915
  9. ASPIRIN [Suspect]
     Indication: CORONARY ARTERY DISEASE
     Route: 048
     Dates: start: 20090906
  10. ASPIRIN [Suspect]
     Indication: STENT PLACEMENT
     Route: 048
     Dates: start: 20090906
  11. ANGIOMAX [Suspect]
     Indication: PERCUTANEOUS CORONARY INTERVENTION
     Route: 051
     Dates: start: 20090906, end: 20090906
  12. ANGIOMAX [Suspect]
     Dosage: 28ML/HR
     Route: 051
     Dates: start: 20090906, end: 20090906
  13. ANGIOMAX [Suspect]
     Dosage: 4ML/HR
     Route: 051
     Dates: start: 20090906, end: 20090906
  14. DELIX [Concomitant]
     Dates: start: 20090906, end: 20090907
  15. RAMIPRIL [Concomitant]
     Dates: start: 20090907, end: 20090915
  16. SIMVASTATIN [Concomitant]
     Dates: start: 20090606
  17. DIGITOXIN [Concomitant]
     Dates: start: 20090910, end: 20090910
  18. EBRANTIL [Concomitant]
     Dates: start: 20090910, end: 20090910
  19. METOPROLOL [Concomitant]
     Dates: start: 20090906, end: 20090908
  20. EPLERENONE [Concomitant]
     Dates: start: 20090910
  21. AMIODARONE [Concomitant]
     Dates: start: 20090910, end: 20090910
  22. BISOPROLOL [Concomitant]
     Dates: start: 20090908, end: 20090910
  23. BISOPROLOL [Concomitant]
     Dates: start: 20090908
  24. MOXONIDINE [Concomitant]
     Dates: start: 20090908, end: 20090916
  25. LERCANIDIPINE [Concomitant]
     Dates: start: 20090908, end: 20090919
  26. TORASEMIDE [Concomitant]
     Dates: start: 20090907
  27. MIDAZOLAM [Concomitant]
     Dates: start: 20090906, end: 20090906
  28. ETOMIDATE [Concomitant]
     Dates: start: 20090906, end: 20090906

REACTIONS (2)
  - OVERDOSE [None]
  - VASCULAR PSEUDOANEURYSM [None]
